FAERS Safety Report 12144376 (Version 4)
Quarter: 2016Q2

REPORT INFORMATION
  Report Type: Spontaneous
  Country: US (occurrence: US)
  Receive Date: 20160304
  Receipt Date: 20160606
  Transmission Date: 20160815
  Serious: No
  Sender: FDA-Public Use
  Company Number: US-PFIZER INC-2016112534

PATIENT
  Age: 50 Year
  Sex: Female

DRUGS (5)
  1. IBRANCE [Suspect]
     Active Substance: PALBOCICLIB
     Indication: BREAST CANCER
     Dosage: 125 MG, UNK
     Route: 048
     Dates: start: 20160229
  2. IBRANCE [Suspect]
     Active Substance: PALBOCICLIB
     Indication: BREAST CANCER METASTATIC
     Dosage: 125 MG, CYCLIC, 1XDAY FOR 21DAYS ON AND 7 DAYS OFF
     Route: 048
     Dates: start: 20160120, end: 20160218
  3. IBRANCE [Suspect]
     Active Substance: PALBOCICLIB
     Dosage: 125 MG, CYCLIC (TAKE ONE PO QD FOR 21DAYS ON AND 7 DAYS OFF)
     Route: 048
  4. FASLODEX [Concomitant]
     Active Substance: FULVESTRANT
     Indication: BREAST CANCER
     Dosage: UNK
  5. IBRANCE [Suspect]
     Active Substance: PALBOCICLIB
     Dosage: 100 MG, CYCLIC (TAKE 1 CAPSULE BY MOUTH EVERY DAY FOR 21 DAYS AND 7 DAYS OFF FOR A 28 DAYS CYCLE)
     Route: 048

REACTIONS (9)
  - Fatigue [Unknown]
  - Pruritus [Unknown]
  - Abdominal discomfort [Unknown]
  - White blood cell count decreased [Recovered/Resolved]
  - Abdominal pain upper [Unknown]
  - Rash [Unknown]
  - Drug dose omission [Unknown]
  - Sinusitis [Recovered/Resolved]
  - Inappropriate schedule of drug administration [Unknown]
